FAERS Safety Report 4868160-6 (Version None)
Quarter: 2005Q4

REPORT INFORMATION
  Report Type: 
  Country: None (occurrence: None)
  Receive Date: 20051223
  Receipt Date: 20051215
  Transmission Date: 20060501
  Serious: Yes (Hospitalization)
  Sender: FDA-Public Use
  Company Number: 2005S1011934

PATIENT
  Sex: Female

DRUGS (6)
  1. AMITRIPTYLINE HYDROCHLORIDE TABLETS, USP (50 MG) [Suspect]
     Indication: DEPRESSION
     Dosage: 50 + 100 + 50  + 100 MG; QAM; ORAL
     Route: 048
     Dates: start: 19810101, end: 20051206
  2. AMITRIPTYLINE HYDROCHLORIDE TABLETS, USP (50 MG) [Suspect]
     Indication: DEPRESSION
     Dosage: 50 + 100 + 50  + 100 MG; QAM; ORAL
     Route: 048
     Dates: start: 19810101, end: 20051206
  3. AMITRIPTYLINE HYDROCHLORIDE TABLETS, USP (50 MG) [Suspect]
     Indication: DEPRESSION
     Dosage: 50 + 100 + 50  + 100 MG; QAM; ORAL
     Route: 048
     Dates: start: 20051208
  4. AMITRIPTYLINE HYDROCHLORIDE TABLETS, USP (50 MG) [Suspect]
     Indication: DEPRESSION
     Dosage: 50 + 100 + 50  + 100 MG; QAM; ORAL
     Route: 048
     Dates: start: 20051208
  5. PAXIL [Suspect]
     Indication: DEPRESSION
     Dosage: 10 MG; QD; ORAL
     Route: 048
     Dates: start: 20050101, end: 20051208
  6. PARACETAMOL/OXYCODONE HYDROCHLORIDE [Concomitant]

REACTIONS (7)
  - ARRHYTHMIA [None]
  - CONFUSIONAL STATE [None]
  - DRUG INTERACTION [None]
  - DYSPHEMIA [None]
  - HALLUCINATION [None]
  - OVERDOSE [None]
  - SUICIDE ATTEMPT [None]
